FAERS Safety Report 10221430 (Version 1)
Quarter: 2014Q2

REPORT INFORMATION
  Report Type: Spontaneous
  Country: GB (occurrence: GB)
  Receive Date: 20140606
  Receipt Date: 20140606
  Transmission Date: 20141212
  Serious: Yes (Hospitalization, Other)
  Sender: FDA-Public Use
  Company Number: GB-ACTAVIS-2014-11993

PATIENT
  Age: 62 Year
  Sex: Female
  Weight: 45 kg

DRUGS (5)
  1. CIPROFLOXACIN [Suspect]
     Indication: URINARY TRACT INFECTION
     Dosage: 250 MG, BID
     Route: 048
     Dates: start: 20140414, end: 20140418
  2. OFLOXACINE (UNKNOWN) [Suspect]
     Indication: URINARY TRACT INFECTION
     Dosage: 400 MG, DAILY (TABLET)
     Route: 048
     Dates: start: 20140411, end: 20140413
  3. TRIMETHOPRIM [Suspect]
     Indication: URINARY TRACT INFECTION
     Dosage: 200 MG, UNK
     Route: 048
     Dates: start: 20140417, end: 20140417
  4. NITROFURANTOIN (UNKNOWN) [Suspect]
     Indication: URINARY TRACT INFECTION
     Dosage: 50 MG, QID
     Route: 067
     Dates: start: 20140326, end: 20140329
  5. DIAZEPAM [Concomitant]
     Indication: PRODUCT USED FOR UNKNOWN INDICATION
     Dosage: UNK UNK, PRN
     Route: 065

REACTIONS (14)
  - Urethral haemorrhage [Unknown]
  - Palpitations [Unknown]
  - Feeling of body temperature change [Unknown]
  - Muscle atrophy [Unknown]
  - Salivary hypersecretion [Unknown]
  - Photosensitivity reaction [Unknown]
  - Arthralgia [Unknown]
  - Hypoaesthesia [Unknown]
  - Dysgeusia [Unknown]
  - Tendon pain [Unknown]
  - Polyp [Unknown]
  - Weight decreased [Unknown]
  - Hypersensitivity [Unknown]
  - Drug ineffective [Not Recovered/Not Resolved]
